FAERS Safety Report 7513551-8 (Version None)
Quarter: 2011Q2

REPORT INFORMATION
  Report Type: 
  Country: None (occurrence: None)
  Receive Date: 20110531
  Receipt Date: 20110519
  Transmission Date: 20111010
  Serious: Yes (Hospitalization, Other)
  Sender: FDA-Public Use
  Company Number: US-BAYER-201036346NA

PATIENT
  Age: 30 Year
  Sex: Female
  Weight: 71.655 kg

DRUGS (12)
  1. INDOMETHACIN [Concomitant]
     Indication: URINARY TRACT INFECTION
  2. KLONOPIN [Concomitant]
  3. CELEXA [Concomitant]
  4. WELLBUTRIN [Concomitant]
  5. YASMIN [Suspect]
     Indication: PRODUCT USED FOR UNKNOWN INDICATION
     Route: 048
     Dates: start: 20050701, end: 20090501
  6. ANTACIDS [Concomitant]
  7. NEXIUM [Concomitant]
  8. XANAX [Concomitant]
  9. ALLEGRA-D 12 HOUR [Concomitant]
  10. BACTRIM [Concomitant]
     Indication: URINARY TRACT INFECTION
  11. YAZ [Suspect]
     Dosage: UNK
     Dates: start: 20060601, end: 20060101
  12. LAMICTAL [Concomitant]

REACTIONS (2)
  - CHOLECYSTITIS CHRONIC [None]
  - GALLBLADDER DISORDER [None]
